FAERS Safety Report 8410005-1 (Version None)
Quarter: 2012Q2

REPORT INFORMATION
  Report Type: 
  Country: None (occurrence: None)
  Receive Date: 20120529
  Receipt Date: 20120521
  Transmission Date: 20120825
  Serious: Yes (Life-Threatening, Hospitalization, Disabling)
  Sender: FDA-Public Use
  Company Number: 2012SP027378

PATIENT
  Age: 77 Year
  Sex: Male

DRUGS (1)
  1. TICE BCG [Suspect]
     Indication: PRODUCT USED FOR UNKNOWN INDICATION
     Dates: end: 20101201

REACTIONS (5)
  - PYREXIA [None]
  - BACK PAIN [None]
  - AORTIC ANEURYSM [None]
  - MYCOTIC ANEURYSM [None]
  - CHILLS [None]
